FAERS Safety Report 8156262-0 (Version None)
Quarter: 2012Q1

REPORT INFORMATION
  Report Type: 
  Country: None (occurrence: None)
  Receive Date: 20120222
  Receipt Date: 20120213
  Transmission Date: 20120608
  Serious: Yes (Other)
  Sender: FDA-Public Use
  Company Number: US-PURDUE-USA-2012-0082280

PATIENT
  Sex: Male

DRUGS (2)
  1. OXYCONTIN [Suspect]
     Indication: PAIN
     Dosage: 80 MG, TID
     Route: 048
  2. OXYCONTIN [Suspect]
     Indication: BREAKTHROUGH PAIN
     Dosage: 30 MG, PRN
     Route: 048

REACTIONS (4)
  - HAEMOPTYSIS [None]
  - GASTRIC DISORDER [None]
  - NAUSEA [None]
  - VOMITING [None]
